FAERS Safety Report 6148704-7 (Version None)
Quarter: 2009Q2

REPORT INFORMATION
  Report Type: 
  Country: None (occurrence: None)
  Receive Date: 20090406
  Receipt Date: 20090406
  Transmission Date: 20091009
  Serious: Yes (Death, Hospitalization)
  Sender: FDA-Public Use
  Company Number: None

PATIENT
  Sex: Male
  Weight: 15.3 kg

DRUGS (4)
  1. THALIDOMIDE [Suspect]
     Indication: EPENDYMOMA
     Dosage: 50 MG ONCE A DAY ORAL (047)
     Route: 048
     Dates: start: 20081212, end: 20081220
  2. CELECOXIB [Suspect]
     Indication: EPENDYMOMA
     Dosage: 100MG ONCE A DAY ORAL
     Route: 048
     Dates: start: 20081212, end: 20081220
  3. FENOFIBRATE [Suspect]
     Indication: EPENDYMOMA
     Dosage: 48MG ONCE A DAY ORAL (047)
     Route: 048
     Dates: start: 20081212, end: 20081220
  4. CYCLOPHOSPHAMIDE [Suspect]
     Dosage: 50 MG ONCE A DAY ORAL (047)
     Route: 048
     Dates: start: 20081212, end: 20081220

REACTIONS (9)
  - ATAXIA [None]
  - DISEASE PROGRESSION [None]
  - DYSPNOEA [None]
  - HEADACHE [None]
  - HYDROCEPHALUS [None]
  - INSOMNIA [None]
  - MENTAL STATUS CHANGES [None]
  - NAUSEA [None]
  - VISUAL IMPAIRMENT [None]
